FAERS Safety Report 12287196 (Version 2)
Quarter: 2016Q2

REPORT INFORMATION
  Report Type: Report from Study
  Country: US (occurrence: US)
  Receive Date: 20160420
  Receipt Date: 20160425
  Transmission Date: 20160815
  Serious: Yes (Other)
  Sender: FDA-Public Use
  Company Number: US-JNJFOC-20160414782

PATIENT
  Age: 52 Year
  Sex: Female
  Weight: 56.7 kg

DRUGS (11)
  1. ENBREL [Suspect]
     Active Substance: ETANERCEPT
     Indication: RHEUMATOID ARTHRITIS
     Route: 042
     Dates: end: 201604
  2. PREDNISONE. [Concomitant]
     Active Substance: PREDNISONE
     Indication: RHEUMATOID ARTHRITIS
     Dosage: FREQUENCY:  AS NEEDED.
     Route: 048
     Dates: start: 1997
  3. ARAVA [Concomitant]
     Active Substance: LEFLUNOMIDE
     Indication: RHEUMATOID ARTHRITIS
     Route: 048
     Dates: start: 1999
  4. ACETAMINOPHEN. [Concomitant]
     Active Substance: ACETAMINOPHEN
     Indication: PAIN
     Dosage: 2 TABLETS 500 MG AS NEEDED
     Route: 048
  5. SIMPONI ARIA [Suspect]
     Active Substance: GOLIMUMAB
     Indication: RHEUMATOID ARTHRITIS
     Dosage: EVERY OTHER MONTH
     Route: 042
     Dates: start: 201501, end: 201512
  6. SULFASALAZINE. [Concomitant]
     Active Substance: SULFASALAZINE
     Indication: RHEUMATOID ARTHRITIS
     Route: 048
     Dates: start: 1998
  7. FISH OIL [Concomitant]
     Active Substance: FISH OIL
     Indication: ROUTINE HEALTH MAINTENANCE
     Route: 048
     Dates: start: 201603
  8. VITAMIN D3 [Concomitant]
     Active Substance: CHOLECALCIFEROL
     Indication: VITAMIN D DECREASED
     Route: 048
     Dates: start: 2010
  9. TURMERIC [Concomitant]
     Active Substance: TURMERIC
     Indication: ROUTINE HEALTH MAINTENANCE
     Route: 048
     Dates: start: 201603
  10. ALEVE [Concomitant]
     Active Substance: NAPROXEN SODIUM
     Indication: SWELLING
     Dosage: ORAL 1 TABLET AS NEEDED.
     Route: 048
  11. PLAQUENIL [Concomitant]
     Active Substance: HYDROXYCHLOROQUINE SULFATE
     Indication: RHEUMATOID ARTHRITIS
     Route: 048
     Dates: start: 1998

REACTIONS (7)
  - Inappropriate schedule of drug administration [Unknown]
  - Scoliosis [Not Recovered/Not Resolved]
  - Cellulitis [Unknown]
  - Off label use [Unknown]
  - Eczema [Recovered/Resolved]
  - Pustular psoriasis [Recovered/Resolved]
  - Feeling abnormal [Recovered/Resolved]

NARRATIVE: CASE EVENT DATE: 201504
